FAERS Safety Report 6309933-2 (Version None)
Quarter: 2009Q3

REPORT INFORMATION
  Report Type: 
  Country: None (occurrence: None)
  Receive Date: 20090814
  Receipt Date: 20090812
  Transmission Date: 20100115
  Serious: Yes (Hospitalization)
  Sender: FDA-Public Use
  Company Number: B0579925B

PATIENT
  Weight: 61 kg

DRUGS (7)
  1. LAPATINIB [Suspect]
     Indication: BREAST CANCER
     Dosage: 1250MG PER DAY
     Route: 048
     Dates: start: 20090409
  2. DOCETAXEL [Suspect]
     Indication: BREAST CANCER
     Dosage: 100MGM2 PER DAY
     Route: 042
     Dates: start: 20090713, end: 20090803
  3. NEULASTA [Suspect]
     Dosage: 6MG PER DAY
     Dates: start: 20090804, end: 20090804
  4. GRANISETRON HCL [Concomitant]
     Dosage: 2MG PER DAY
     Dates: start: 20090803
  5. DEXAMETHASONE [Concomitant]
     Dosage: 8MG PER DAY
     Dates: start: 20090803, end: 20090806
  6. ZOLPIDEM [Concomitant]
     Dates: start: 20090810, end: 20090811
  7. DIAZEPAM [Concomitant]
     Dosage: 5MG PER DAY
     Dates: start: 20090811, end: 20090811

REACTIONS (4)
  - ARTHRALGIA [None]
  - DIARRHOEA [None]
  - DYSPNOEA [None]
  - VOMITING [None]
